FAERS Safety Report 4749152-4 (Version None)
Quarter: 2005Q3

REPORT INFORMATION
  Report Type: 
  Country: None (occurrence: None)
  Receive Date: 20050817
  Receipt Date: 20050812
  Transmission Date: 20060218
  Serious: Yes (Hospitalization)
  Sender: FDA-Public Use
  Company Number: 2005FR-00227

PATIENT

DRUGS (1)
  1. FLUOXETINE [Suspect]
     Dosage: 20MG, A DAY, ORAL
     Route: 048
     Dates: start: 20050101

REACTIONS (2)
  - HEADACHE [None]
  - MENINGITIS [None]
